FAERS Safety Report 5007631-9 (Version None)
Quarter: 2006Q2

REPORT INFORMATION
  Report Type: 
  Country: None (occurrence: None)
  Receive Date: 20060518
  Receipt Date: 20060505
  Transmission Date: 20061013
  Serious: Yes (Hospitalization, Other)
  Sender: FDA-Public Use
  Company Number: 2006062517

PATIENT
  Sex: Female
  Weight: 90.7194 kg

DRUGS (11)
  1. CELEBREX [Suspect]
     Indication: PAIN
     Dosage: 200 MG (200 MG, 1 IN 1 D), ORAL
     Route: 048
  2. LUMIGAN [Suspect]
     Indication: GLAUCOMA
     Dates: start: 20060101, end: 20060101
  3. ASPIRIN [Concomitant]
  4. SYNTHROID [Concomitant]
  5. DETROL [Concomitant]
  6. HYDROCHLOROTHIAZIDE [Concomitant]
  7. CHONDROITIN/GLUCOSAMINE  (CHONDROITIN, GLUCOSAMINE) [Concomitant]
  8. PRILOSEC [Concomitant]
  9. FISH OIL (FISH OIL) [Concomitant]
  10. CALCIUM (CALCIUM) [Concomitant]
  11. MULTIVITAMIN [Concomitant]

REACTIONS (11)
  - COLONIC POLYP [None]
  - DRUG HYPERSENSITIVITY [None]
  - FALL [None]
  - GASTRIC POLYPS [None]
  - GASTROOESOPHAGEAL REFLUX DISEASE [None]
  - INSOMNIA [None]
  - JOINT INJURY [None]
  - LOSS OF CONSCIOUSNESS [None]
  - PAIN [None]
  - UPPER LIMB FRACTURE [None]
  - UTERINE POLYP [None]
